FAERS Safety Report 14102188 (Version 1)
Quarter: 2017Q4

REPORT INFORMATION
  Report Type: Spontaneous
  Country: US (occurrence: US)
  Receive Date: 20171018
  Receipt Date: 20171018
  Transmission Date: 20180321
  Serious: Yes (Other)
  Sender: FDA-Public Use
  Company Number: US-BAYER-2017-183890

PATIENT
  Age: 54 Year
  Sex: Female

DRUGS (1)
  1. CIPRO [Suspect]
     Active Substance: CIPROFLOXACIN HYDROCHLORIDE
     Indication: BACTERIAL INFECTION
     Dosage: UNK
     Dates: start: 2009

REACTIONS (2)
  - Neuropathy peripheral [Not Recovered/Not Resolved]
  - Plantar fasciitis [Recovered/Resolved]
